FAERS Safety Report 7413439-7 (Version None)
Quarter: 2011Q2

REPORT INFORMATION
  Report Type: 
  Country: None (occurrence: None)
  Receive Date: 20110413
  Receipt Date: 20110404
  Transmission Date: 20111010
  Serious: Yes (Other)
  Sender: FDA-Public Use
  Company Number: PHHY2011JP18710

PATIENT
  Age: 78 Year
  Sex: Male

DRUGS (3)
  1. VOLTAREN [Suspect]
     Indication: BACK PAIN
     Route: 048
  2. ANTICHOLINERGICS [Concomitant]
     Indication: BENIGN PROSTATIC HYPERPLASIA
  3. MUCOSTA [Suspect]
     Route: 048

REACTIONS (1)
  - URINARY RETENTION [None]
